FAERS Safety Report 4345106-0 (Version None)
Quarter: 2004Q2

REPORT INFORMATION
  Report Type: 
  Country: None (occurrence: None)
  Receive Date: 20040420
  Receipt Date: 20040412
  Transmission Date: 20050107
  Serious: Yes (Other)
  Sender: FDA-Public Use
  Company Number: 2004194015US

PATIENT
  Sex: Female

DRUGS (3)
  1. DEPO-MEDROL [Suspect]
     Dosage: CYLIC, EPIDURAL; SEE IMAGE
     Route: 008
     Dates: start: 20020305
  2. DEPO-MEDROL [Suspect]
     Dosage: CYLIC, EPIDURAL; SEE IMAGE
     Route: 008
     Dates: start: 20020314
  3. DEPO-MEDROL [Suspect]
     Dosage: CYLIC, EPIDURAL; SEE IMAGE
     Route: 008
     Dates: start: 20020410

REACTIONS (9)
  - ARTHRITIS [None]
  - BRONCHITIS [None]
  - CUSHING'S SYNDROME [None]
  - DEPRESSION [None]
  - IMPAIRED HEALING [None]
  - INFECTION [None]
  - PNEUMONIA [None]
  - PSYCHOTIC DISORDER [None]
  - SUICIDE ATTEMPT [None]
